FAERS Safety Report 15125654 (Version 1)
Quarter: 2018Q3

REPORT INFORMATION
  Report Type: Spontaneous
  Country: US (occurrence: US)
  Receive Date: 20180614
  Receipt Date: 20180614
  Transmission Date: 20181010
  Serious: Yes (Hospitalization)
  Sender: FDA-Public Use
  Company Number: None

PATIENT
  Age: 67 Year
  Sex: Female
  Weight: 73.63 kg

DRUGS (2)
  1. GALUNISERTIB [Suspect]
     Active Substance: GALUNISERTIB
     Indication: OVARIAN CANCER
     Dosage: ?          OTHER FREQUENCY:DAYS 4?17 OF CYCLE;?
     Route: 048
     Dates: start: 20170914
  2. CARBOPLATIN, TAXOL [Suspect]
     Active Substance: CARBOPLATIN\PACLITAXEL
     Indication: OVARIAN CANCER
     Dosage: ?          OTHER FREQUENCY:Q 3 WEEKS;?
     Route: 042
     Dates: start: 20170911

REACTIONS (3)
  - Neutropenia [None]
  - Pyrexia [None]
  - Syncope [None]

NARRATIVE: CASE EVENT DATE: 20180212
